FAERS Safety Report 9948041 (Version 1)
Quarter: 2014Q1

REPORT INFORMATION
  Report Type: Report from Study
  Country: US (occurrence: US)
  Receive Date: 20140303
  Receipt Date: 20140303
  Transmission Date: 20141002
  Serious: No
  Sender: FDA-Public Use
  Company Number: US-ABBVIE-13P-163-1056523-00

PATIENT
  Age: 26 Year
  Sex: Male

DRUGS (4)
  1. HUMIRA [Suspect]
     Indication: ANKYLOSING SPONDYLITIS
     Dates: start: 201209
  2. ZOLOFT [Concomitant]
     Indication: DEPRESSION
     Dosage: 100MG 1 1/2 TABS DAILY
  3. ADVAIR [Concomitant]
     Indication: ASTHMA
     Dosage: 200MG 2 PUFFS DAILY
  4. INH [Concomitant]
     Indication: LATENT TUBERCULOSIS
     Dosage: 1 PILL NIGHTLY
     Dates: start: 201208

REACTIONS (2)
  - Contusion [Recovering/Resolving]
  - Sinusitis [Not Recovered/Not Resolved]
